FAERS Safety Report 19749553 (Version 1)
Quarter: 2021Q3

REPORT INFORMATION
  Report Type: Spontaneous
  Country: US (occurrence: US)
  Receive Date: 20210823
  Receipt Date: 20210823
  Transmission Date: 20211014
  Serious: Yes (Hospitalization)
  Sender: FDA-Public Use
  Company Number: None

PATIENT
  Age: 12 Year
  Sex: Male
  Weight: 32.9 kg

DRUGS (8)
  1. ALBUTEROL. [Concomitant]
     Active Substance: ALBUTEROL
  2. MIRALAX [Concomitant]
     Active Substance: POLYETHYLENE GLYCOL 3350
  3. CYPROHETADONE (PERIACTIN) [Concomitant]
  4. SCANDISHAKE VANILLA (SCANDISHAKE) [Concomitant]
  5. DORNASE ALFA (PULMOZYME) [Concomitant]
  6. PEDIATRIC MUTLIVIT 2?D3?VIT K (MVW COMPLETE FORMULA MULTIVIT) [Concomitant]
  7. TRIKAFTA [Suspect]
     Active Substance: ELEXACAFTOR\IVACAFTOR\TEZACAFTOR
     Indication: CYSTIC FIBROSIS
     Dosage: ?          OTHER DOSE:100/50/75 MG;?
     Route: 048
     Dates: start: 20210625, end: 20210704
  8. MOMETASONE?FORMOTERAL (DULERA) [Concomitant]

REACTIONS (1)
  - Rash [None]

NARRATIVE: CASE EVENT DATE: 20210705
